FAERS Safety Report 6721806-X (Version None)
Quarter: 2010Q2

REPORT INFORMATION
  Report Type: 
  Country: None (occurrence: None)
  Receive Date: 20100512
  Receipt Date: 20100505
  Transmission Date: 20101027
  Serious: Yes (Other)
  Sender: FDA-Public Use
  Company Number: US-ROCHE-702064

PATIENT
  Sex: Female

DRUGS (3)
  1. AVASTIN [Suspect]
     Indication: MALIGNANT GLIOMA
     Route: 065
     Dates: start: 20091101, end: 20100401
  2. TEMODAR [Suspect]
     Indication: MALIGNANT GLIOMA
     Route: 065
     Dates: start: 20091101
  3. TYKERB [Suspect]
     Indication: MALIGNANT GLIOMA
     Route: 065

REACTIONS (4)
  - EPISTAXIS [None]
  - LARYNGEAL DISORDER [None]
  - MUCOSAL INFLAMMATION [None]
  - SKIN DISORDER [None]
